FAERS Safety Report 7297617-6 (Version None)
Quarter: 2011Q1

REPORT INFORMATION
  Report Type: 
  Country: None (occurrence: None)
  Receive Date: 20110216
  Receipt Date: 20110207
  Transmission Date: 20110831
  Serious: Yes (Other)
  Sender: FDA-Public Use
  Company Number: US-AMGEN-USASP2011007602

PATIENT
  Age: 79 Year
  Sex: Female

DRUGS (2)
  1. METHOTREXATE [Concomitant]
     Dates: start: 20101001
  2. ENBREL [Suspect]
     Indication: RHEUMATOID ARTHRITIS
     Dosage: 50 MG, QWK
     Dates: start: 20100927, end: 20101227

REACTIONS (9)
  - HEADACHE [None]
  - TINNITUS [None]
  - OEDEMA PERIPHERAL [None]
  - DIZZINESS POSTURAL [None]
  - NAUSEA [None]
  - BRONCHITIS [None]
  - PAIN IN EXTREMITY [None]
  - FATIGUE [None]
  - ARTHRALGIA [None]
